FAERS Safety Report 6492709-3 (Version None)
Quarter: 2009Q4

REPORT INFORMATION
  Report Type: 
  Country: None (occurrence: None)
  Receive Date: 20091209
  Receipt Date: 20091124
  Transmission Date: 20100525
  Serious: Yes (Other)
  Sender: FDA-Public Use
  Company Number: 430053M09USA

PATIENT
  Age: 68 Year
  Sex: Female

DRUGS (2)
  1. NOVANTRONE [Suspect]
     Indication: MULTIPLE SCLEROSIS
     Dates: end: 20021201
  2. AVONEX [Concomitant]

REACTIONS (8)
  - DISEASE PROGRESSION [None]
  - EJECTION FRACTION DECREASED [None]
  - FALL [None]
  - GAIT DISTURBANCE [None]
  - LUMBAR SPINAL STENOSIS [None]
  - MULTIPLE SCLEROSIS [None]
  - SEPSIS [None]
  - SPINAL COMPRESSION FRACTURE [None]
